FAERS Safety Report 6939278-9 (Version None)
Quarter: 2010Q3

REPORT INFORMATION
  Report Type: 
  Country: None (occurrence: None)
  Receive Date: 20100824
  Receipt Date: 20100810
  Transmission Date: 20110219
  Serious: Yes (Other)
  Sender: FDA-Public Use
  Company Number: IT-JNJFOC-20100804095

PATIENT
  Age: 34 Year
  Sex: Male

DRUGS (2)
  1. INFLIXIMAB [Suspect]
     Indication: PSORIATIC ARTHROPATHY
     Dosage: STARTED AT 0, 2 AND 6 WEEKS
     Route: 042
  2. INFLIXIMAB [Suspect]
     Dosage: STARTED AT 0, 2 AND 6 WEEKS
     Route: 042

REACTIONS (1)
  - PULMONARY SARCOIDOSIS [None]
